FAERS Safety Report 21395380 (Version 2)
Quarter: 2022Q4

REPORT INFORMATION
  Report Type: Spontaneous
  Country: FR (occurrence: FR)
  Receive Date: 20220930
  Receipt Date: 20221004
  Transmission Date: 20230113
  Serious: Yes (Other)
  Sender: FDA-Public Use
  Company Number: FR-BIOGEN-2022BI01158075

PATIENT
  Age: 46 Year
  Sex: Female

DRUGS (1)
  1. TECFIDERA [Suspect]
     Active Substance: DIMETHYL FUMARATE
     Indication: Relapsing-remitting multiple sclerosis
     Route: 050
     Dates: start: 201903, end: 20220921

REACTIONS (2)
  - Eye infection toxoplasmal [Not Recovered/Not Resolved]
  - Lymphopenia [Unknown]

NARRATIVE: CASE EVENT DATE: 20220301
